FAERS Safety Report 5336533-3 (Version None)
Quarter: 2007Q2

REPORT INFORMATION
  Report Type: 
  Country: None (occurrence: None)
  Receive Date: 20070529
  Receipt Date: 20070525
  Transmission Date: 20071010
  Serious: Yes (Other)
  Sender: FDA-Public Use
  Company Number: US-BAYER-200711141BWH

PATIENT
  Sex: Male

DRUGS (2)
  1. AVELOX [Suspect]
     Indication: NAIL INFECTION
     Route: 048
  2. AUGMENTIN '125' [Concomitant]

REACTIONS (1)
  - CONVULSION [None]
